FAERS Safety Report 9720646 (Version 2)
Quarter: 2014Q1

REPORT INFORMATION
  Report Type: Report from Study
  Country: DE (occurrence: DE)
  Receive Date: 20131129
  Receipt Date: 20140113
  Transmission Date: 20141002
  Serious: Yes (Hospitalization)
  Sender: FDA-Public Use
  Company Number: PHHY2013DE138279

PATIENT
  Sex: Male

DRUGS (3)
  1. FTY 720 [Suspect]
     Indication: MULTIPLE SCLEROSIS
     Dosage: 0.5 MG, QD
     Route: 048
     Dates: start: 20130211, end: 20131119
  2. TAMSULOSIN [Concomitant]
     Dates: start: 20030401
  3. SIRDALUD [Concomitant]
     Dosage: 4 MG, UNK
     Dates: start: 20130618

REACTIONS (1)
  - Rash [Recovered/Resolved]
